FAERS Safety Report 21189847 (Version 8)
Quarter: 2023Q1

REPORT INFORMATION
  Report Type: Report from Study
  Country: US (occurrence: US)
  Receive Date: 20220809
  Receipt Date: 20230105
  Transmission Date: 20230418
  Serious: Yes (Hospitalization, Other)
  Sender: FDA-Public Use
  Company Number: US-TAKEDA-2022TUS052758

PATIENT
  Age: 61 Year
  Sex: Female
  Weight: 90.249 kg

DRUGS (8)
  1. LANADELUMAB [Suspect]
     Active Substance: LANADELUMAB
     Indication: Breast cancer female
     Dosage: 300 MILLIGRAM, Q2WEEKS
     Route: 058
     Dates: start: 20220708
  2. LANADELUMAB [Suspect]
     Active Substance: LANADELUMAB
     Indication: Immune system disorder
     Dosage: 300 MILLIGRAM, Q2WEEKS
     Route: 058
     Dates: start: 20220711
  3. LANADELUMAB [Suspect]
     Active Substance: LANADELUMAB
     Indication: Psoriasis
     Dosage: UNK, Q2WEEKS
     Route: 058
     Dates: start: 20220712
  4. LANADELUMAB [Suspect]
     Active Substance: LANADELUMAB
     Dosage: 300 MILLIGRAM, Q2WEEKS
     Route: 058
     Dates: start: 20220712
  5. LANADELUMAB [Suspect]
     Active Substance: LANADELUMAB
     Dosage: 300 MILLIGRAM, Q2WEEKS
     Route: 058
     Dates: start: 202207
  6. IBRANCE [Concomitant]
     Active Substance: PALBOCICLIB
     Dosage: 1 DOSAGE FORM, QD
     Route: 048
  7. OTEZLA [Concomitant]
     Active Substance: APREMILAST
     Dosage: UNK
     Route: 065
  8. LYNPARZA [Concomitant]
     Active Substance: OLAPARIB
     Dosage: UNK
     Route: 065

REACTIONS (11)
  - Influenza [Unknown]
  - Cerebrovascular accident [Unknown]
  - Pain [Unknown]
  - Condition aggravated [Recovering/Resolving]
  - Rash macular [Recovering/Resolving]
  - Pruritus [Recovering/Resolving]
  - Skin burning sensation [Recovering/Resolving]
  - Weight decreased [Unknown]
  - Weight increased [Unknown]
  - Product dose omission issue [Unknown]
  - Off label use [Unknown]

NARRATIVE: CASE EVENT DATE: 20220913
